FAERS Safety Report 26164071 (Version 1)
Quarter: 2025Q4

REPORT INFORMATION
  Report Type: Spontaneous
  Country: EU (occurrence: EU)
  Receive Date: 20251216
  Receipt Date: 20251216
  Transmission Date: 20260117
  Serious: Yes (Other)
  Sender: SANOFI AVENTIS
  Company Number: EU-DialogSolutions-SAAVPROD-PI851733-C1

PATIENT

DRUGS (2)
  1. CLOPIDOGREL BISULFATE [Suspect]
     Active Substance: CLOPIDOGREL BISULFATE
     Indication: Aneurysm ruptured
     Dosage: 75 MG, QD
  2. ASPIRIN [Suspect]
     Active Substance: ASPIRIN
     Indication: Aneurysm ruptured
     Dosage: 100 MG, QD

REACTIONS (1)
  - Embolism [Unknown]
